FAERS Safety Report 16227560 (Version 2)
Quarter: 2019Q2

REPORT INFORMATION
  Report Type: Spontaneous
  Country: CH (occurrence: CH)
  Receive Date: 20190423
  Receipt Date: 20190425
  Transmission Date: 20190711
  Serious: Yes (Hospitalization, Other)
  Sender: FDA-Public Use
  Company Number: CH-PFIZER INC-2019172367

PATIENT
  Age: 73 Year
  Sex: Male
  Weight: 76.5 kg

DRUGS (10)
  1. ASPIRIN CARDIO [Suspect]
     Active Substance: ASPIRIN
     Dosage: UNK
     Route: 065
     Dates: end: 20180822
  2. COVERAM [Suspect]
     Active Substance: AMLODIPINE\PERINDOPRIL
     Dosage: UNK
     Route: 065
  3. ZYLORIC [Concomitant]
     Active Substance: ALLOPURINOL
     Dosage: UNK
  4. SEEBRI [Concomitant]
     Active Substance: GLYCOPYRROLATE
     Dosage: UNK
  5. PANTOZOL [Suspect]
     Active Substance: PANTOPRAZOLE SODIUM
     Dosage: 40 MG, UNK
     Route: 065
  6. IRFEN [Suspect]
     Active Substance: IBUPROFEN
     Indication: BACK PAIN
     Dosage: UNK
     Route: 065
  7. BILOL [Concomitant]
     Active Substance: BISOPROLOL
     Dosage: UNK
  8. PRAVASTATIN MEPHA [Concomitant]
     Active Substance: PRAVASTATIN
     Dosage: UNK
  9. DUODART [Concomitant]
     Active Substance: DUTASTERIDE\TAMSULOSIN
     Dosage: UNK
  10. LASIX [Suspect]
     Active Substance: FUROSEMIDE
     Indication: OEDEMA PERIPHERAL
     Dosage: 160 MILLIGRAM, QD
     Route: 065

REACTIONS (1)
  - Renal failure [Recovered/Resolved]
